FAERS Safety Report 5023424-0 (Version None)
Quarter: 2006Q2

REPORT INFORMATION
  Report Type: 
  Country: None (occurrence: None)
  Receive Date: 20060612
  Receipt Date: 20060527
  Transmission Date: 20061013
  Serious: Yes (Hospitalization)
  Sender: FDA-Public Use
  Company Number: PHBS2006JP07796

PATIENT
  Age: 74 Year
  Sex: Male

DRUGS (12)
  1. STARSIS [Suspect]
     Indication: DIABETES MELLITUS
     Dosage: 270 MG/DAY
     Route: 048
     Dates: start: 20050328, end: 20060518
  2. BASEN [Concomitant]
     Indication: DIABETES MELLITUS
     Dosage: 0.9 MG, UNK
     Dates: start: 20050328, end: 20060518
  3. NORVASC [Concomitant]
     Indication: HYPERTENSION
     Dosage: 10 MG, UNK
     Dates: start: 20050704
  4. BLOPRESS [Concomitant]
     Indication: HYPERTENSION
     Dosage: 16 MG, UNK
     Dates: start: 20050328
  5. OLMETEC [Concomitant]
     Indication: HYPERTENSION
     Dosage: 20 MG, UNK
     Dates: start: 20060518
  6. CARDENALIN [Concomitant]
     Dosage: 2 MG, UNK
     Route: 048
     Dates: start: 20051121
  7. POLARAMINE [Concomitant]
     Indication: PRURITUS
     Dosage: 18 MG, UNK
     Dates: start: 20051011
  8. TANKARU [Concomitant]
     Indication: HYPERPHOSPHATAEMIA
     Dosage: 3 G, UNK
     Dates: start: 20050328
  9. ALLOPURINOL [Concomitant]
     Indication: HYPERURICAEMIA
     Dosage: 100 MG, UNK
     Dates: start: 20050328
  10. LASIX [Concomitant]
     Indication: HYPERTENSION
     Dosage: 40 MG, UNK
     Dates: start: 20050328
  11. BUFFERIN [Concomitant]
     Indication: CEREBRAL INFARCTION
     Dosage: 81 MG, UNK
     Dates: start: 20060310
  12. LAXOBERON [Concomitant]
     Indication: CONSTIPATION
     Dosage: 0.75 %, UNK
     Dates: start: 20050328

REACTIONS (4)
  - DEPRESSED LEVEL OF CONSCIOUSNESS [None]
  - HYPERTENSION [None]
  - HYPOGLYCAEMIA [None]
  - VOMITING [None]
